FAERS Safety Report 6249968-1 (Version None)
Quarter: 2009Q2

REPORT INFORMATION
  Report Type: 
  Country: None (occurrence: None)
  Receive Date: 20090629
  Receipt Date: 20090615
  Transmission Date: 20091009
  Serious: Yes (Death, Other)
  Sender: FDA-Public Use
  Company Number: US-GENENTECH-285621

PATIENT

DRUGS (4)
  1. AVASTIN [Suspect]
     Indication: BREAST CANCER
     Dosage: 15 MG/KG, Q3W
     Route: 065
  2. DOXORUBICIN HCL [Suspect]
     Indication: BREAST CANCER
     Dosage: 50 MG/M2, UNK
     Route: 065
  3. CYCLOPHOSPHAMIDE [Suspect]
     Indication: BREAST CANCER
     Dosage: 500 MG/M2, Q3W
     Route: 065
  4. DOCETAXEL [Suspect]
     Indication: BREAST CANCER
     Dosage: 75 MG/M2, UNK
     Route: 065

REACTIONS (13)
  - ARTHRALGIA [None]
  - BONE PAIN [None]
  - CARDIAC FAILURE CONGESTIVE [None]
  - FATIGUE [None]
  - FEBRILE NEUTROPENIA [None]
  - LEUKOPENIA [None]
  - MYALGIA [None]
  - NEUTROPENIA [None]
  - NEUTROPENIC COLITIS [None]
  - PAIN IN EXTREMITY [None]
  - RADIATION SKIN INJURY [None]
  - RASH [None]
  - THROMBOCYTOPENIA [None]
